FAERS Safety Report 21960756 (Version 2)
Quarter: 2023Q1

REPORT INFORMATION
  Report Type: Spontaneous
  Country: JP (occurrence: JP)
  Receive Date: 20230207
  Receipt Date: 20230307
  Transmission Date: 20230418
  Serious: Yes (Other)
  Sender: FDA-Public Use
  Company Number: JP-TAKEDA-2023TJP001602

PATIENT
  Sex: Male

DRUGS (4)
  1. TRINTELLIX [Suspect]
     Active Substance: VORTIOXETINE HYDROBROMIDE
     Indication: Product used for unknown indication
     Dosage: 20 MILLIGRAM
     Route: 048
  2. TRINTELLIX [Suspect]
     Active Substance: VORTIOXETINE HYDROBROMIDE
     Dosage: 10 MILLIGRAM
     Route: 048
  3. TRINTELLIX [Suspect]
     Active Substance: VORTIOXETINE HYDROBROMIDE
     Dosage: UNK
     Route: 048
  4. TRINTELLIX [Suspect]
     Active Substance: VORTIOXETINE HYDROBROMIDE
     Dosage: 15 MILLIGRAM
     Route: 048

REACTIONS (12)
  - Glaucoma [Unknown]
  - Panic disorder [Unknown]
  - Blood pressure increased [Unknown]
  - Discomfort [Unknown]
  - Hepatic function abnormal [Unknown]
  - Fall [Unknown]
  - Blood pressure decreased [Unknown]
  - Intentional underdose [Unknown]
  - Wrong technique in product usage process [Unknown]
  - Headache [Unknown]
  - Feeling abnormal [Unknown]
  - Insomnia [Unknown]
